FAERS Safety Report 10066820 (Version 1)
Quarter: 2014Q2

REPORT INFORMATION
  Report Type: Spontaneous
  Country: NL (occurrence: NL)
  Receive Date: 20140408
  Receipt Date: 20140408
  Transmission Date: 20141212
  Serious: Yes (Hospitalization)
  Sender: FDA-Public Use
  Company Number: NL-009507513-1403NLD013387

PATIENT
  Age: 60 Year
  Sex: Female
  Weight: 78 kg

DRUGS (2)
  1. NASONEX [Suspect]
     Indication: HYPERSENSITIVITY
     Dosage: 1 DF, UNK
     Route: 045
     Dates: start: 20131103
  2. METOPROLOL [Concomitant]
     Dosage: 1 DF, UNK, IF NEEDED, AFTER START USE NASONEX, EVERY DAY
     Route: 048

REACTIONS (1)
  - Cardiac disorder [Recovered/Resolved]
